FAERS Safety Report 12948926 (Version 1)
Quarter: 2016Q4

REPORT INFORMATION
  Report Type: Spontaneous
  Country: IT (occurrence: IT)
  Receive Date: 20161117
  Receipt Date: 20161117
  Transmission Date: 20170207
  Serious: Yes (Hospitalization)
  Sender: FDA-Public Use
  Company Number: IT-TEVA-711783ACC

PATIENT
  Age: 71 Year
  Sex: Male

DRUGS (5)
  1. BROMAZEPAM [Suspect]
     Active Substance: BROMAZEPAM
     Indication: PRODUCT USED FOR UNKNOWN INDICATION
  2. DUOTRAV - 40 MCG/ML + 5 MG/ML COLLIRIO SOLUZIONE [Concomitant]
     Indication: PRODUCT USED FOR UNKNOWN INDICATION
  3. LORAZEPAM. [Suspect]
     Active Substance: LORAZEPAM
     Indication: PRODUCT USED FOR UNKNOWN INDICATION
  4. AZOPT - 10 MG/ML COLLIRIO SOSPENSIONE [Concomitant]
     Indication: PRODUCT USED FOR UNKNOWN INDICATION
  5. OMNIC - 0,4 MG CAPSULE RIGIDE A RILASCIO MODIFICATO [Concomitant]
     Indication: PRODUCT USED FOR UNKNOWN INDICATION

REACTIONS (4)
  - Disorientation [Recovered/Resolved]
  - Sopor [Recovered/Resolved]
  - Headache [Recovered/Resolved]
  - Neck pain [Recovered/Resolved]

NARRATIVE: CASE EVENT DATE: 20160626
